FAERS Safety Report 21842548 (Version 2)
Quarter: 2023Q1

REPORT INFORMATION
  Report Type: Spontaneous
  Country: US (occurrence: US)
  Receive Date: 20230110
  Receipt Date: 20230228
  Transmission Date: 20230417
  Serious: No
  Sender: FDA-Public Use
  Company Number: US-SA-SAC20230109000413

PATIENT
  Age: 4 Year
  Sex: Male
  Weight: 36.2 kg

DRUGS (6)
  1. LUMIZYME [Suspect]
     Active Substance: ALGLUCOSIDASE ALFA
     Indication: Glycogen storage disease type II
     Dosage: 1700 MG, QW
     Route: 042
     Dates: start: 20150402
  2. PULMICORT FLEXHALER [Concomitant]
     Active Substance: BUDESONIDE
  3. TOBRAMYCIN [Concomitant]
     Active Substance: TOBRAMYCIN
  4. XOPENEX [Concomitant]
     Active Substance: LEVALBUTEROL HYDROCHLORIDE
  5. IRON [Concomitant]
     Active Substance: IRON
  6. VITAMIN C [Concomitant]
     Active Substance: ASCORBIC ACID

REACTIONS (3)
  - Pyrexia [Unknown]
  - Hyperhidrosis [Unknown]
  - Inappropriate schedule of product administration [Unknown]

NARRATIVE: CASE EVENT DATE: 20150402
